FAERS Safety Report 23118683 (Version 1)
Quarter: 2023Q4

REPORT INFORMATION
  Report Type: Report from Study
  Country: US (occurrence: US)
  Receive Date: 20231028
  Receipt Date: 20231028
  Transmission Date: 20240110
  Serious: Yes (Death, Other)
  Sender: FDA-Public Use
  Company Number: US-ABBVIE-5470819

PATIENT
  Age: 83 Year
  Sex: Female

DRUGS (1)
  1. CREON [Suspect]
     Active Substance: PANCRELIPASE AMYLASE\PANCRELIPASE LIPASE\PANCRELIPASE PROTEASE
     Indication: Dyspepsia
     Dosage: TAKEN AFTER MEALS
     Route: 048
     Dates: start: 2018

REACTIONS (5)
  - Cardiac failure [Fatal]
  - Diarrhoea [Unknown]
  - Systemic lupus erythematosus [Not Recovered/Not Resolved]
  - Spinal fracture [Unknown]
  - Rheumatoid arthritis [Not Recovered/Not Resolved]

NARRATIVE: CASE EVENT DATE: 20230101
